FAERS Safety Report 11451417 (Version 1)
Quarter: 2015Q3

REPORT INFORMATION
  Report Type: Spontaneous
  Country: US (occurrence: US)
  Receive Date: 20150903
  Receipt Date: 20150903
  Transmission Date: 20151125
  Serious: No
  Sender: FDA-Public Use
  Company Number: US-ROCHE-1014594

PATIENT
  Sex: Male
  Weight: 67.65 kg

DRUGS (3)
  1. RIBAVIRIN. [Suspect]
     Active Substance: RIBAVIRIN
     Indication: CHRONIC HEPATITIS C
     Route: 048
     Dates: start: 20110424
  2. PEGASYS [Suspect]
     Active Substance: PEGINTERFERON ALFA-2A
     Indication: CHRONIC HEPATITIS C
     Route: 058
     Dates: start: 20110324
  3. RIBAVIRIN. [Suspect]
     Active Substance: RIBAVIRIN
     Dosage: APPROXIAMETLY 2 MONTHS AGO
     Route: 065

REACTIONS (9)
  - Chest discomfort [Unknown]
  - Asthenia [Unknown]
  - Anaemia [Unknown]
  - Dyspnoea exertional [Unknown]
  - Vomiting [Unknown]
  - Fatigue [Unknown]
  - Vision blurred [Unknown]
  - Nausea [Unknown]
  - Weight decreased [Unknown]
